FAERS Safety Report 8016015-0 (Version None)
Quarter: 2011Q4

REPORT INFORMATION
  Report Type: 
  Country: None (occurrence: None)
  Receive Date: 20111230
  Receipt Date: 20111230
  Transmission Date: 20120403
  Serious: Yes (Other)
  Sender: FDA-Public Use
  Company Number: None

PATIENT
  Sex: Male
  Weight: 72.574 kg

DRUGS (1)
  1. LARIAM [Suspect]
     Indication: MALARIA PROPHYLAXIS
     Dosage: MEGADOSE
     Route: 048

REACTIONS (6)
  - AFFECTIVE DISORDER [None]
  - SLEEP DISORDER [None]
  - MAJOR DEPRESSION [None]
  - SUICIDAL IDEATION [None]
  - ANXIETY [None]
  - FATIGUE [None]
